FAERS Safety Report 18156482 (Version 2)
Quarter: 2020Q3

REPORT INFORMATION
  Report Type: Spontaneous
  Country: US (occurrence: US)
  Receive Date: 20200817
  Receipt Date: 20200828
  Transmission Date: 20201103
  Serious: Yes (Hospitalization)
  Sender: FDA-Public Use
  Company Number: US-PFIZER INC-2020313553

PATIENT
  Age: 91 Year
  Sex: Female

DRUGS (1)
  1. IBRANCE [Suspect]
     Active Substance: PALBOCICLIB
     Indication: BREAST CANCER FEMALE
     Dosage: 100 MG, CYCLIC (ON DAYS 1?21 OF A 28 DAY CYCLE)
     Dates: start: 20200727

REACTIONS (6)
  - Fatigue [Unknown]
  - Depressed mood [Unknown]
  - Sedation [Unknown]
  - Anaemia [Unknown]
  - Disturbance in attention [Unknown]
  - Pain [Unknown]

NARRATIVE: CASE EVENT DATE: 202008
